FAERS Safety Report 9683993 (Version 1)
Quarter: 2013Q4

REPORT INFORMATION
  Report Type: Spontaneous
  Country: FR (occurrence: FR)
  Receive Date: 20131112
  Receipt Date: 20131112
  Transmission Date: 20140711
  Serious: Yes (Hospitalization, Other)
  Sender: FDA-Public Use
  Company Number: FR-PFIZER INC-2013321379

PATIENT
  Age: 15 Year
  Sex: Male

DRUGS (15)
  1. EUPANTOL [Suspect]
     Dosage: UNK
     Route: 048
     Dates: start: 20130910, end: 20130921
  2. CIPROFLOXACIN HCL [Suspect]
     Dosage: UNK
     Route: 048
     Dates: start: 20130910, end: 20130922
  3. MEROPENEM [Suspect]
     Dosage: UNK
     Route: 042
     Dates: start: 20130914, end: 20130922
  4. PROPOFOL LIPURO [Suspect]
     Dosage: UNK
     Route: 042
     Dates: start: 20130917, end: 20130922
  5. MORPHINE [Suspect]
     Dosage: UNK
     Route: 042
     Dates: start: 20130919, end: 20130923
  6. MIDAZOLAM [Suspect]
     Dosage: UNK
     Dates: start: 20130909, end: 20130920
  7. THIOPENTAL ROTEXMEDICA [Suspect]
     Dosage: UNK
     Route: 042
     Dates: start: 20130909, end: 20130916
  8. NOZINAN [Suspect]
     Dosage: UNK
     Route: 042
     Dates: start: 20130921, end: 20130923
  9. DUPHALAC [Suspect]
     Dosage: UNK
     Route: 048
     Dates: start: 20130920, end: 20130923
  10. SUFENTANIL [Suspect]
     Dosage: UNK
     Route: 042
     Dates: start: 20130909, end: 20130918
  11. NORADRENALINE [Suspect]
     Dosage: UNK
     Route: 042
     Dates: start: 20130909, end: 20130921
  12. PARACETAMOL [Concomitant]
     Dosage: UNK
  13. LEVETIRACETAM [Concomitant]
     Dosage: UNK
  14. METOCLOPRAMIDE [Concomitant]
     Dosage: UNK
  15. ERYTHROMYCIN [Concomitant]
     Dosage: UNK

REACTIONS (2)
  - Agranulocytosis [Recovered/Resolved]
  - Rash [Recovered/Resolved]
